FAERS Safety Report 4735544-6 (Version None)
Quarter: 2005Q3

REPORT INFORMATION
  Report Type: 
  Country: None (occurrence: None)
  Receive Date: 20050802
  Receipt Date: 20050725
  Transmission Date: 20060218
  Serious: Yes (Death)
  Sender: FDA-Public Use
  Company Number: S05-USA-03655-01

PATIENT
  Age: 53 Year
  Sex: Female

DRUGS (3)
  1. LEXAPRO [Suspect]
     Indication: STRESS
     Dosage: 10 MG QD PO
     Route: 048
     Dates: end: 20050418
  2. SEROQUEL [Concomitant]
  3. COMBIVENT [Concomitant]

REACTIONS (5)
  - COLON CANCER [None]
  - HEPATIC FAILURE [None]
  - HEPATOMEGALY [None]
  - MENTAL STATUS CHANGES [None]
  - METASTASES TO LIVER [None]
